FAERS Safety Report 10932826 (Version 1)
Quarter: 2015Q1

REPORT INFORMATION
  Report Type: Spontaneous
  Country: US (occurrence: None)
  Receive Date: 20150319
  Receipt Date: 20150319
  Transmission Date: 20150721
  Serious: No
  Sender: FDA-Public Use
  Company Number: 2014CT000196

PATIENT
  Age: 39 Year
  Sex: Female

DRUGS (3)
  1. KORLYM [Suspect]
     Active Substance: MIFEPRISTONE
     Indication: CUSHING^S SYNDROME
     Route: 048
     Dates: start: 201408
  2. ORAL CONTRACEPTIVE NOS [Concomitant]
     Active Substance: UNSPECIFIED INGREDIENT
  3. ATIVAN [Concomitant]
     Active Substance: LORAZEPAM

REACTIONS (4)
  - Abdominal pain upper [None]
  - Joint swelling [None]
  - Ligament sprain [None]
  - Arthralgia [None]

NARRATIVE: CASE EVENT DATE: 201411
